FAERS Safety Report 7521697-3 (Version None)
Quarter: 2011Q2

REPORT INFORMATION
  Report Type: 
  Country: None (occurrence: None)
  Receive Date: 20110603
  Receipt Date: 20110523
  Transmission Date: 20111010
  Serious: Yes (Death, Hospitalization)
  Sender: FDA-Public Use
  Company Number: US-CELGENEUS-163-21880-11053008

PATIENT
  Age: 35 Year
  Sex: Male

DRUGS (10)
  1. ZOFRAN [Concomitant]
     Route: 065
  2. NEXIUM [Concomitant]
     Route: 065
  3. ATIVAN [Concomitant]
     Route: 065
  4. VANCOMYCIN [Concomitant]
     Route: 048
  5. REVLIMID [Suspect]
     Indication: MULTIPLE MYELOMA
     Dosage: 25 MILLIGRAM
     Route: 048
     Dates: start: 20090101, end: 20090501
  6. REVLIMID [Suspect]
     Dosage: 25 MILLIGRAM
     Route: 048
     Dates: start: 20100801, end: 20101001
  7. MORPHINE [Concomitant]
     Route: 065
  8. COMPAZINE [Concomitant]
     Route: 065
  9. ACYCLOVIR [Concomitant]
     Route: 065
  10. HALDOL [Concomitant]
     Route: 065

REACTIONS (2)
  - CLOSTRIDIUM DIFFICILE COLITIS [None]
  - DEATH [None]
